FAERS Safety Report 14730594 (Version 1)
Quarter: 2018Q2

REPORT INFORMATION
  Report Type: Spontaneous
  Country: US (occurrence: US)
  Receive Date: 20180402
  Receipt Date: 20180402
  Transmission Date: 20180711
  Serious: Yes (Life-Threatening, Hospitalization)
  Sender: FDA-Public Use
  Company Number: None

PATIENT
  Age: 55 Year
  Sex: Female
  Weight: 71.1 kg

DRUGS (8)
  1. CHLORTHALIDONE. [Concomitant]
     Active Substance: CHLORTHALIDONE
  2. TIZANIDINE HYDROCHLORIDE CAPSULES [Suspect]
     Active Substance: TIZANIDINE HYDROCHLORIDE
     Indication: MUSCLE SPASMS
     Dosage: ?          QUANTITY:1 CAPSULE(S);?
     Route: 048
     Dates: start: 20170901, end: 20180328
  3. DULOXETINE. [Concomitant]
     Active Substance: DULOXETINE
  4. TAMOXIFEN [Concomitant]
     Active Substance: TAMOXIFEN
  5. LISINOPRIL. [Concomitant]
     Active Substance: LISINOPRIL
  6. MVI [Concomitant]
     Active Substance: VITAMINS
  7. TIZANIDINE HYDROCHLORIDE CAPSULES [Suspect]
     Active Substance: TIZANIDINE HYDROCHLORIDE
     Indication: KNEE ARTHROPLASTY
     Dosage: ?          QUANTITY:1 CAPSULE(S);?
     Route: 048
     Dates: start: 20170901, end: 20180328
  8. CA/MG/D [Concomitant]

REACTIONS (4)
  - Injury [None]
  - Syncope [None]
  - Hypotension [None]
  - Electrocardiogram QT prolonged [None]

NARRATIVE: CASE EVENT DATE: 20180328
